FAERS Safety Report 23020131 (Version 1)
Quarter: 2023Q4

REPORT INFORMATION
  Report Type: Spontaneous
  Country: CN (occurrence: CN)
  Receive Date: 20231003
  Receipt Date: 20231003
  Transmission Date: 20240110
  Serious: Yes (Hospitalization)
  Sender: FDA-Public Use
  Company Number: CN-ELI_LILLY_AND_COMPANY-CN202309014677

PATIENT
  Age: 85 Year
  Sex: Female
  Weight: 40 kg

DRUGS (4)
  1. HUMALOG MIX50/50 [Suspect]
     Active Substance: INSULIN LISPRO
     Indication: Type 2 diabetes mellitus
     Dosage: 10 U, DAILY
     Route: 058
     Dates: start: 20230923, end: 20230923
  2. METHYLCOBALAMIN [Concomitant]
     Active Substance: METHYLCOBALAMIN
     Indication: Nervous system disorder
     Dosage: 0.5 MG, TID
     Route: 048
     Dates: start: 20230920, end: 20230924
  3. METFORMIN HYDROCHLORIDE [Concomitant]
     Active Substance: METFORMIN HYDROCHLORIDE
     Indication: Type 2 diabetes mellitus
     Dosage: 0.5 G, BID
     Route: 048
     Dates: start: 20230922, end: 20230924
  4. SITAGLIPTIN PHOSPHATE [Concomitant]
     Active Substance: SITAGLIPTIN PHOSPHATE
     Indication: Type 2 diabetes mellitus
     Dosage: 100 MG, DAILY
     Route: 048
     Dates: start: 20230922, end: 20230924

REACTIONS (3)
  - Blood glucose decreased [Recovering/Resolving]
  - Asthenia [Recovering/Resolving]
  - Hyperhidrosis [Recovering/Resolving]

NARRATIVE: CASE EVENT DATE: 20230924
